FAERS Safety Report 6249136-3 (Version None)
Quarter: 2009Q2

REPORT INFORMATION
  Report Type: 
  Country: None (occurrence: None)
  Receive Date: 20090624
  Receipt Date: 20090624
  Transmission Date: 20091009
  Serious: Yes (Hospitalization)
  Sender: FDA-Public Use
  Company Number: None

PATIENT
  Age: 62 Year
  Sex: Male

DRUGS (5)
  1. GEMCITABINE [Suspect]
     Indication: PANCREATIC CARCINOMA
     Dosage: 1000MG/M2 D1, D15 IV DRIP
     Route: 041
     Dates: start: 20071227, end: 20081112
  2. BEVACIZUMAB 25MG/ML GENENTECH [Suspect]
     Indication: PANCREATIC CARCINOMA
     Dosage: 10MG/KG D1, D15 IV DRIP
     Route: 041
     Dates: start: 20070220, end: 20081015
  3. HYZAAR [Concomitant]
  4. LOVENOX [Concomitant]
  5. IBUPROFEN [Concomitant]

REACTIONS (3)
  - ADVERSE REACTION [None]
  - BLOOD PRESSURE INADEQUATELY CONTROLLED [None]
  - HEADACHE [None]
